FAERS Safety Report 4372704-0 (Version None)
Quarter: 2004Q2

REPORT INFORMATION
  Report Type: 
  Country: None (occurrence: None)
  Receive Date: 20040526
  Receipt Date: 20040514
  Transmission Date: 20050107
  Serious: Yes (Hospitalization)
  Sender: FDA-Public Use
  Company Number: US-JNJFOC-20040503812

PATIENT
  Sex: Male

DRUGS (1)
  1. RISPERDAL [Suspect]

REACTIONS (4)
  - BRADYCARDIA [None]
  - DIZZINESS [None]
  - DRUG ABUSER [None]
  - DYSPNOEA [None]
